FAERS Safety Report 19987724 (Version 3)
Quarter: 2021Q4

REPORT INFORMATION
  Report Type: Report from Study
  Country: BR (occurrence: BR)
  Receive Date: 20211023
  Receipt Date: 20211109
  Transmission Date: 20220304
  Serious: Yes (Death, Hospitalization)
  Sender: FDA-Public Use
  Company Number: BR-ABBVIE-21K-020-4129222-00

PATIENT
  Sex: Male
  Weight: 120 kg

DRUGS (1)
  1. RINVOQ [Suspect]
     Active Substance: UPADACITINIB
     Indication: Rheumatoid arthritis
     Route: 048

REACTIONS (10)
  - COVID-19 [Fatal]
  - Sepsis [Fatal]
  - Rheumatoid arthritis [Fatal]
  - Pulmonary embolism [Fatal]
  - Bacterial infection [Fatal]
  - Skin bacterial infection [Unknown]
  - Blood uric acid increased [Unknown]
  - Influenza [Unknown]
  - Drug ineffective [Unknown]
  - Drug ineffective [Not Recovered/Not Resolved]

NARRATIVE: CASE EVENT DATE: 20210101
